FAERS Safety Report 24725859 (Version 1)
Quarter: 2024Q4

REPORT INFORMATION
  Report Type: Spontaneous
  Country: US (occurrence: US)
  Receive Date: 20241212
  Receipt Date: 20241212
  Transmission Date: 20250115
  Serious: Yes (Hospitalization)
  Sender: ABBVIE
  Company Number: US-ABBVIE-6038685

PATIENT

DRUGS (1)
  1. CANASA [Suspect]
     Active Substance: MESALAMINE
     Indication: Product used for unknown indication
     Route: 054

REACTIONS (1)
  - Hospitalisation [Recovered/Resolved]
